FAERS Safety Report 16746130 (Version 1)
Quarter: 2019Q3

REPORT INFORMATION
  Report Type: Spontaneous
  Country: US (occurrence: US)
  Receive Date: 20190827
  Receipt Date: 20190827
  Transmission Date: 20191005
  Serious: No
  Sender: FDA-Public Use
  Company Number: US-ABBVIE-19K-163-2750037-00

PATIENT
  Sex: Male

DRUGS (1)
  1. MAVYRET [Suspect]
     Active Substance: GLECAPREVIR\PIBRENTASVIR
     Indication: HEPATITIS C
     Route: 048
     Dates: start: 201903, end: 201904

REACTIONS (2)
  - Incorrect product administration duration [Not Recovered/Not Resolved]
  - Product communication issue [Not Recovered/Not Resolved]

NARRATIVE: CASE EVENT DATE: 201904
